FAERS Safety Report 15412411 (Version 2)
Quarter: 2018Q4

REPORT INFORMATION
  Report Type: Spontaneous
  Country: JP (occurrence: JP)
  Receive Date: 20180921
  Receipt Date: 20181017
  Transmission Date: 20190204
  Serious: Yes (Life-Threatening, Hospitalization, Other)
  Sender: FDA-Public Use
  Company Number: JP-BAYER-2018-171774

PATIENT
  Age: 77 Year
  Sex: Male
  Weight: 70 kg

DRUGS (12)
  1. EDOXABAN [Interacting]
     Active Substance: EDOXABAN TOSYLATE
     Indication: ANALGESIC THERAPY
     Dosage: 270 MG
     Route: 048
  2. FUROSEMIDE. [Interacting]
     Active Substance: FUROSEMIDE
     Indication: CARDIAC FAILURE
     Dosage: DAILY DOSE 20 MG
     Route: 048
  3. CRESTOR [Concomitant]
     Active Substance: ROSUVASTATIN CALCIUM
     Indication: DYSLIPIDAEMIA
     Dosage: DAILY DOSE 2.5 MG
     Route: 048
  4. HERBESSER [Concomitant]
     Active Substance: DILTIAZEM HYDROCHLORIDE
     Indication: ATRIAL FIBRILLATION
     Dosage: DAILY DOSE 200 MG
     Route: 048
  5. VASOLAN [Concomitant]
     Active Substance: VERAPAMIL HYDROCHLORIDE
     Indication: ATRIAL FIBRILLATION
     Dosage: DAILY DOSE 80 MG
     Route: 048
  6. BAYASPIRIN 100 MG [Interacting]
     Active Substance: ASPIRIN
     Indication: ANALGESIC THERAPY
  7. BAYASPIRIN 100 MG [Suspect]
     Active Substance: ASPIRIN
     Indication: ATRIAL FIBRILLATION
     Dosage: DAILY DOSE 100 MG
     Route: 048
  8. BAYASPIRIN 100 MG [Interacting]
     Active Substance: ASPIRIN
     Indication: ANGINA UNSTABLE
     Dosage: 900 MG
     Route: 048
  9. EDOXABAN [Interacting]
     Active Substance: EDOXABAN TOSYLATE
     Indication: ATRIAL FIBRILLATION
     Dosage: DAILY DOSE 30 MG
     Route: 048
  10. LANIRAPID [Concomitant]
     Active Substance: METILDIGOXIN
     Indication: CARDIAC FAILURE
     Dosage: DAILY DOSE .05 MG
     Route: 048
  11. FEBUXOSTAT. [Concomitant]
     Active Substance: FEBUXOSTAT
     Indication: HYPERURICAEMIA
     Dosage: DAILY DOSE 40 MG
     Route: 048
  12. TAKEPRON [Concomitant]
     Active Substance: LANSOPRAZOLE
     Dosage: DAILY DOSE 15 MG
     Route: 048

REACTIONS (8)
  - Bleeding time prolonged [None]
  - Product use in unapproved indication [None]
  - Pharyngeal haemorrhage [None]
  - Labelled drug-drug interaction medication error [None]
  - Epistaxis [Recovered/Resolved]
  - Cholecystitis [Recovered/Resolved]
  - Haemobilia [None]
  - Accidental overdose [None]

NARRATIVE: CASE EVENT DATE: 20180305
